FAERS Safety Report 10260214 (Version 2)
Quarter: 2014Q2

REPORT INFORMATION
  Report Type: Spontaneous
  Country: DE (occurrence: DE)
  Receive Date: 20140625
  Receipt Date: 20140625
  Transmission Date: 20141212
  Serious: Yes (Other)
  Sender: FDA-Public Use
  Company Number: DE-UCBSA-104955

PATIENT
  Age: 24 Year
  Sex: Female

DRUGS (2)
  1. KEPPRA [Suspect]
     Dosage: 1000 MG, 2X/DAY (BID)
  2. IBUPROFEN [Concomitant]
     Indication: HEADACHE
     Dosage: 400MG, RARELY USED

REACTIONS (2)
  - Premature delivery [Unknown]
  - Pregnancy [Unknown]
